FAERS Safety Report 14700496 (Version 1)
Quarter: 2018Q1

REPORT INFORMATION
  Report Type: Spontaneous
  Country: MX (occurrence: MX)
  Receive Date: 20180330
  Receipt Date: 20180330
  Transmission Date: 20180509
  Serious: Yes (Death, Other)
  Sender: FDA-Public Use
  Company Number: MX-JNJFOC-20180340199

PATIENT
  Age: 89 Year
  Sex: Female

DRUGS (1)
  1. XARELTO [Suspect]
     Active Substance: RIVAROXABAN
     Indication: VENOUS THROMBOSIS
     Route: 048
     Dates: start: 20161128, end: 20180112

REACTIONS (5)
  - Fall [Unknown]
  - Femur fracture [Recovering/Resolving]
  - Asthenia [Unknown]
  - Bronchial disorder [Recovered/Resolved with Sequelae]
  - Acute myocardial infarction [Fatal]

NARRATIVE: CASE EVENT DATE: 20180118
